FAERS Safety Report 6633084-0 (Version None)
Quarter: 2010Q1

REPORT INFORMATION
  Report Type: 
  Country: None (occurrence: None)
  Receive Date: 20100312
  Receipt Date: 20100301
  Transmission Date: 20100710
  Serious: Yes (Hospitalization)
  Sender: FDA-Public Use
  Company Number: PHHY2010JP06992

PATIENT
  Sex: Female

DRUGS (4)
  1. FAMVIR [Suspect]
     Indication: HERPES ZOSTER
     Dosage: 500 MG, QD
     Route: 048
     Dates: start: 20100130, end: 20100204
  2. LOXOPROFEN SODIUM [Concomitant]
     Dosage: UNK
     Dates: start: 20100201
  3. VIDARABINE [Concomitant]
     Dosage: UNK
     Dates: start: 20100130
  4. RABEPRAZOLE SODIUM [Concomitant]

REACTIONS (6)
  - AGITATION [None]
  - DELIRIUM [None]
  - HYPOPHAGIA [None]
  - INSOMNIA [None]
  - PSYCHOMOTOR HYPERACTIVITY [None]
  - SUBDURAL HYGROMA [None]
